FAERS Safety Report 15597246 (Version 1)
Quarter: 2018Q4

REPORT INFORMATION
  Report Type: Spontaneous
  Country: US (occurrence: US)
  Receive Date: 20181107
  Receipt Date: 20181107
  Transmission Date: 20190205
  Serious: Yes (Life-Threatening, Hospitalization, Disabling)
  Sender: FDA-Public Use
  Company Number: None

PATIENT
  Sex: Female
  Weight: 74.25 kg

DRUGS (1)
  1. NUVARING [Suspect]
     Active Substance: ETHINYL ESTRADIOL\ETONOGESTREL
     Indication: CONTRACEPTION
     Dosage: ?          QUANTITY:1 RING;OTHER FREQUENCY:3 WEEKS/RING;?
     Route: 067
     Dates: start: 20180725, end: 20181019

REACTIONS (11)
  - Migraine [None]
  - Aura [None]
  - Dyspnoea [None]
  - Hyperhidrosis [None]
  - Dizziness [None]
  - Photophobia [None]
  - Cerebrovascular accident [None]
  - Nausea [None]
  - Hypoaesthesia [None]
  - Speech disorder [None]
  - Dysarthria [None]

NARRATIVE: CASE EVENT DATE: 20181017
